FAERS Safety Report 11398190 (Version 1)
Quarter: 2015Q3

REPORT INFORMATION
  Report Type: Spontaneous
  Country: US (occurrence: US)
  Receive Date: 20150820
  Receipt Date: 20150820
  Transmission Date: 20151125
  Serious: No
  Sender: FDA-Public Use
  Company Number: US-009507513-1508USA006271

PATIENT
  Sex: Male

DRUGS (2)
  1. IVERMECTIN. [Suspect]
     Active Substance: IVERMECTIN
     Indication: NEMATODIASIS
  2. IVERMECTIN. [Suspect]
     Active Substance: IVERMECTIN
     Indication: ENTEROBIASIS
     Dosage: UNK
     Route: 048
     Dates: start: 201507

REACTIONS (1)
  - Drug effect decreased [Unknown]

NARRATIVE: CASE EVENT DATE: 2015
